FAERS Safety Report 20364790 (Version 1)
Quarter: 2022Q1

REPORT INFORMATION
  Report Type: Report from Study
  Country: US (occurrence: US)
  Receive Date: 20220122
  Receipt Date: 20220122
  Transmission Date: 20220423
  Serious: Yes (Other)
  Sender: FDA-Public Use
  Company Number: US-NOVARTISTESTPH-NVSC2022US007682

PATIENT
  Sex: Female

DRUGS (1)
  1. KESIMPTA [Suspect]
     Active Substance: OFATUMUMAB
     Indication: Multiple sclerosis
     Dosage: UNK, QMO (ONCE A WEEK FOR 4 WEEKS.ONCE 4TH WEEK, ONCE A MONTH)
     Route: 058

REACTIONS (2)
  - Multiple sclerosis relapse [Unknown]
  - Hypoaesthesia [Unknown]
